FAERS Safety Report 24168814 (Version 1)
Quarter: 2024Q3

REPORT INFORMATION
  Report Type: Spontaneous
  Country: NL (occurrence: NL)
  Receive Date: 20240802
  Receipt Date: 20240802
  Transmission Date: 20241017
  Serious: Yes (Other)
  Sender: BRISTOL MYERS SQUIBB
  Company Number: None

PATIENT
  Age: 92 Year
  Sex: Female
  Weight: 70 kg

DRUGS (3)
  1. ELIQUIS [Suspect]
     Active Substance: APIXABAN
     Indication: Atrial fibrillation
     Dates: start: 20220101, end: 20240624
  2. FENTANYL [Concomitant]
     Active Substance: FENTANYL\FENTANYL CITRATE
     Indication: Product used for unknown indication
  3. OXYCODONE [Concomitant]
     Active Substance: OXYCODONE
     Indication: Product used for unknown indication

REACTIONS (2)
  - Skin necrosis [Not Recovered/Not Resolved]
  - Venous haemorrhage [Not Recovered/Not Resolved]
